FAERS Safety Report 5285575-5 (Version None)
Quarter: 2007Q1

REPORT INFORMATION
  Report Type: 
  Country: None (occurrence: None)
  Receive Date: 20061229
  Receipt Date: 20061017
  Transmission Date: 20070707
  Serious: Yes (Other)
  Sender: FDA-Public Use
  Company Number: 2006UW20031

PATIENT
  Age: 63 Year
  Sex: Female
  Weight: 68.038 kg

DRUGS (6)
  1. CRESTOR [Suspect]
     Indication: BLOOD CHOLESTEROL INCREASED
     Dosage: 5 MG PO
     Route: 048
     Dates: start: 20050420
  2. SYNTHROID [Concomitant]
  3. PRILOSEC [Concomitant]
  4. ZETIA [Concomitant]
  5. NEURONTIN [Concomitant]
  6. ALTACE [Concomitant]

REACTIONS (6)
  - BLOOD PRESSURE INCREASED [None]
  - OEDEMA PERIPHERAL [None]
  - PERIPHERAL SENSORY NEUROPATHY [None]
  - PHARYNGEAL OEDEMA [None]
  - SWOLLEN TONGUE [None]
  - URTICARIA [None]
